FAERS Safety Report 12995412 (Version 5)
Quarter: 2018Q1

REPORT INFORMATION
  Report Type: Report from Study
  Country: JP (occurrence: JP)
  Receive Date: 20161202
  Receipt Date: 20180319
  Transmission Date: 20180508
  Serious: Yes (Death, Life-Threatening, Hospitalization, Other)
  Sender: FDA-Public Use
  Company Number: JP-BRISTOL-MYERS SQUIBB COMPANY-BMS-2016-101653

PATIENT
  Age: 81 Year
  Sex: Male
  Weight: 50.4 kg

DRUGS (12)
  1. APIXABAN [Suspect]
     Active Substance: APIXABAN
     Indication: CEREBROVASCULAR ACCIDENT PROPHYLAXIS
     Dosage: 2.5 MG, BID
     Route: 048
     Dates: start: 20140422, end: 20150623
  2. AMLODIN [Concomitant]
     Active Substance: AMLODIPINE BESYLATE
     Indication: HYPERTENSION
     Dosage: 2.5 MG, SINGLE
     Route: 048
     Dates: end: 20150526
  3. ALLOPURINOL. [Concomitant]
     Active Substance: ALLOPURINOL
     Indication: HYPERURICAEMIA
     Dosage: 200 MG, QD
     Route: 048
  4. PIOGLITAZONE                       /01460202/ [Concomitant]
     Active Substance: PIOGLITAZONE HYDROCHLORIDE
     Indication: DIABETES MELLITUS
     Dosage: 15 MG, QD
     Route: 048
  5. MICARDIS [Concomitant]
     Active Substance: TELMISARTAN
     Indication: HYPERTENSION
     Dosage: 40 MG, QD
     Route: 048
  6. FOLIAMIN [Concomitant]
     Active Substance: FOLIC ACID
     Indication: ANAEMIA
     Dosage: 15 MG, QD
     Route: 048
  7. BIFIDOBACTERIUM ANIMALIS [Concomitant]
     Indication: DIARRHOEA
     Dosage: 36 MG, QD
     Route: 048
  8. URSO [Concomitant]
     Active Substance: URSODIOL
     Indication: LIVER DISORDER
     Dosage: 300 MG, QD
     Route: 048
  9. LIXIANA [Concomitant]
     Active Substance: EDOXABAN TOSYLATE
     Indication: PRODUCT USED FOR UNKNOWN INDICATION
     Dosage: 15 MG, QD
     Route: 048
     Dates: start: 20150722
  10. IMIDAPRIL HYDROCHLORIDE [Concomitant]
     Active Substance: IMIDAPRIL HYDROCHLORIDE
     Indication: HYPERTENSION
     Dosage: 2.5 MG, SINGLE
     Route: 048
     Dates: end: 20141201
  11. ARICEPT [Concomitant]
     Active Substance: DONEPEZIL HYDROCHLORIDE
     Indication: DEMENTIA ALZHEIMER^S TYPE
     Dosage: 5 MG, SINGLE
     Route: 048
     Dates: end: 20150526
  12. LIXIANA [Concomitant]
     Active Substance: EDOXABAN TOSYLATE
     Indication: PRODUCT USED FOR UNKNOWN INDICATION
     Dosage: 7.5 MG, QD
     Route: 048
     Dates: start: 20150714, end: 20150721

REACTIONS (4)
  - Pneumonia [Fatal]
  - Acute kidney injury [Fatal]
  - Acute respiratory distress syndrome [Fatal]
  - Renal impairment [Recovered/Resolved with Sequelae]

NARRATIVE: CASE EVENT DATE: 20150526
